FAERS Safety Report 7658159-9 (Version None)
Quarter: 2011Q3

REPORT INFORMATION
  Report Type: 
  Country: None (occurrence: None)
  Receive Date: 20110805
  Receipt Date: 20110730
  Transmission Date: 20111222
  Serious: Yes (Other)
  Sender: FDA-Public Use
  Company Number: CHPA2011BR10317

PATIENT
  Sex: Female

DRUGS (7)
  1. HEPARIN [Concomitant]
     Indication: PROPHYLAXIS
     Dosage: UNK
     Dates: start: 20110701
  2. CATAFLAM [Suspect]
     Indication: JOINT SWELLING
  3. CATAFLAM [Suspect]
     Indication: ARTHRALGIA
     Dosage: UNK, UNK
     Route: 062
     Dates: start: 20110730
  4. TYLEX (PARACETAMOL/CODEINE PHOSPHATE) [Concomitant]
     Indication: ARTHRALGIA
     Dosage: 4 DF, QD
     Route: 048
     Dates: start: 20110701
  5. TYLENOL-500 [Concomitant]
     Indication: ARTHRALGIA
     Dosage: UNK
     Route: 048
     Dates: start: 20110701
  6. OMEPRAZOLE [Concomitant]
  7. HYDRALAZINE HCL [Concomitant]

REACTIONS (2)
  - JOINT SWELLING [None]
  - JOINT FLUID DRAINAGE [None]
